FAERS Safety Report 8184758-4 (Version None)
Quarter: 2012Q1

REPORT INFORMATION
  Report Type: 
  Country: None (occurrence: None)
  Receive Date: 20120305
  Receipt Date: 20120305
  Transmission Date: 20120608
  Serious: Yes (Other)
  Sender: FDA-Public Use
  Company Number: None

PATIENT
  Age: 56 Year
  Sex: Female
  Weight: 67.131 kg

DRUGS (1)
  1. LOVASTATIN [Suspect]
     Indication: LIPIDS ABNORMAL
     Dosage: 20.0 MG
     Dates: start: 20070909, end: 20100815

REACTIONS (3)
  - HYPOAESTHESIA [None]
  - ARTHRALGIA [None]
  - SENSATION OF HEAVINESS [None]
